FAERS Safety Report 7686974-4 (Version None)
Quarter: 2011Q3

REPORT INFORMATION
  Report Type: 
  Country: None (occurrence: None)
  Receive Date: 20110816
  Receipt Date: 20110810
  Transmission Date: 20111222
  Serious: Yes (Other)
  Sender: FDA-Public Use
  Company Number: US-BAYER-2011-060909

PATIENT
  Age: 51 Year
  Sex: Female

DRUGS (3)
  1. BETASERON [Suspect]
     Dosage: 8 MIU, QOD
     Route: 058
     Dates: start: 20110101
  2. BETASERON [Suspect]
     Indication: RELAPSING-REMITTING MULTIPLE SCLEROSIS
     Dosage: 4 MIU, QOD
     Route: 058
     Dates: start: 20110627, end: 20110101
  3. IBUPROFEN [Concomitant]

REACTIONS (6)
  - FALL [None]
  - VISUAL IMPAIRMENT [None]
  - CONVULSION [None]
  - PAIN [None]
  - PYREXIA [None]
  - MUSCLE RIGIDITY [None]
